FAERS Safety Report 5137160-3 (Version None)
Quarter: 2006Q4

REPORT INFORMATION
  Report Type: 
  Country: None (occurrence: None)
  Receive Date: 20061030
  Receipt Date: 20050902
  Transmission Date: 20070319
  Serious: Yes (Other)
  Sender: FDA-Public Use
  Company Number: US-GLAXOSMITHKLINE-A0572997A

PATIENT
  Age: 60 Year
  Sex: Female

DRUGS (8)
  1. ADVAIR HFA [Suspect]
     Indication: DRUG USE FOR UNKNOWN INDICATION
     Dosage: 1PUFF TWICE PER DAY
     Route: 055
     Dates: end: 20050818
  2. PREMARIN [Concomitant]
  3. LEVOXYL [Concomitant]
  4. CELEXA [Concomitant]
  5. FUROSEMIDE [Concomitant]
  6. ALLEGRA-D 12 HOUR [Concomitant]
  7. VICODIN [Concomitant]
  8. SOMA [Concomitant]

REACTIONS (4)
  - ASTHMA [None]
  - CHEST DISCOMFORT [None]
  - COUGH [None]
  - ILL-DEFINED DISORDER [None]
